FAERS Safety Report 5753465-7 (Version None)
Quarter: 2008Q2

REPORT INFORMATION
  Report Type: 
  Country: None (occurrence: None)
  Receive Date: 20080527
  Receipt Date: 20080513
  Transmission Date: 20081010
  Serious: Yes (Death, Hospitalization)
  Sender: FDA-Public Use
  Company Number: GXKR2008US04082

PATIENT
  Age: 73 Year
  Sex: Male

DRUGS (3)
  1. DEXAMETHASONE [Suspect]
     Indication: GLIOBLASTOMA MULTIFORME
     Dosage: 4 MG, BID,
  2. TEMOZOLOMIDE [Suspect]
     Indication: GLIOBLASTOMA MULTIFORME
     Dosage: 165 MG/M2 FOR 5 DAYS, 2 CYCLES
  3. RADIATION THERAPY (NO INGREDIENTS/SUBSTANCES) [Concomitant]

REACTIONS (6)
  - BRAIN OEDEMA [None]
  - CRYPTOCOCCOSIS [None]
  - DEPRESSED LEVEL OF CONSCIOUSNESS [None]
  - IMMUNOSUPPRESSION [None]
  - INCOHERENT [None]
  - MENINGITIS CRYPTOCOCCAL [None]
